FAERS Safety Report 6153420-1 (Version None)
Quarter: 2009Q2

REPORT INFORMATION
  Report Type: 
  Country: None (occurrence: None)
  Receive Date: 20090409
  Receipt Date: 20090409
  Transmission Date: 20091009
  Serious: Yes (Hospitalization)
  Sender: FDA-Public Use
  Company Number: None

PATIENT
  Age: 64 Year
  Sex: Male
  Weight: 114 kg

DRUGS (7)
  1. RISPERIDONE [Suspect]
     Indication: DEMENTIA
     Dosage: 1MG PO QHS 2005 TO PRESENT
     Route: 048
     Dates: start: 20050101
  2. RISPERIDONE [Suspect]
     Indication: PSYCHOTIC DISORDER
     Dosage: 1MG PO QHS 2005 TO PRESENT
     Route: 048
     Dates: start: 20050101
  3. RISPERIDONE [Suspect]
     Indication: TRAUMATIC BRAIN INJURY
     Dosage: 1MG PO QHS 2005 TO PRESENT
     Route: 048
     Dates: start: 20050101
  4. ASPIRIN [Concomitant]
  5. AMMONIUM LACTITATE LOTION [Concomitant]
  6. OXYBUTININ CL [Concomitant]
  7. IBP [Concomitant]

REACTIONS (5)
  - ATRIAL FIBRILLATION [None]
  - DEEP VEIN THROMBOSIS [None]
  - OEDEMA PERIPHERAL [None]
  - TACHYCARDIA [None]
  - WEIGHT INCREASED [None]
